FAERS Safety Report 9568705 (Version 3)
Quarter: 2013Q4

REPORT INFORMATION
  Report Type: Spontaneous
  Country: US (occurrence: US)
  Receive Date: 20130930
  Receipt Date: 20131120
  Transmission Date: 20140711
  Serious: Yes (Other)
  Sender: FDA-Public Use
  Company Number: US-AMGEN-USASP2013061116

PATIENT
  Age: 56 Year
  Sex: Female
  Weight: 80.27 kg

DRUGS (18)
  1. ENBREL [Suspect]
     Indication: RHEUMATOID ARTHRITIS
     Dosage: 50 MG, QWK
     Route: 058
     Dates: start: 20130710
  2. LIVALO [Concomitant]
     Dosage: 1 MG, UNK (RA)
  3. ESTRING [Concomitant]
     Dosage: 2 MG, UNK (MIS)
  4. ESTRING [Concomitant]
     Dosage: 10 MG, EVERY THREE MONTH
  5. METHOTREXATE [Concomitant]
     Dosage: 2.5 MG, UNK
  6. PIROXICAM [Concomitant]
     Dosage: 10 MG, UNK
  7. PIROXICAM [Concomitant]
     Dosage: 20 MG, QD, # 30 WITH FIVE REFILLS
  8. ZOLPIDEM [Concomitant]
     Dosage: 10 MG, AS NECESSARY
  9. ESTRACE [Concomitant]
     Dosage: 1 MG, AS NECESSARY
  10. MULTIVITAMINS, PLAIN [Concomitant]
     Dosage: UNK
  11. CALCIUM [Concomitant]
     Dosage: 500 UNK, UNK
  12. COQ 10 [Concomitant]
     Dosage: 100 MG, UNK
  13. FOLIC ACID [Concomitant]
     Dosage: UNK
  14. PLAQUENIL                          /00072602/ [Concomitant]
     Dosage: 200 MG, UNK
  15. MELATONIN [Concomitant]
     Dosage: 1 MG, UNK
  16. HUMIRA [Concomitant]
     Indication: RHEUMATOID ARTHRITIS
     Dosage: UNK (40MG/ 0.8)
  17. PREDNISONE [Concomitant]
     Dosage: UNK
  18. ATORVASTATIN [Concomitant]
     Dosage: 10 MG, QD

REACTIONS (19)
  - Nausea [Recovered/Resolved]
  - Nervousness [Recovered/Resolved]
  - Vomiting [Recovered/Resolved]
  - Headache [Recovered/Resolved]
  - Asthenia [Recovered/Resolved]
  - Retching [Recovered/Resolved]
  - Pain [Recovered/Resolved]
  - Oophorectomy [Unknown]
  - Lichen sclerosus [Unknown]
  - Vulval disorder [Unknown]
  - Local swelling [Unknown]
  - Musculoskeletal pain [Unknown]
  - Pain in extremity [Unknown]
  - Arthritis [Unknown]
  - Laryngitis [Unknown]
  - Injection site erythema [Recovered/Resolved]
  - Injection site rash [Recovered/Resolved]
  - Injection site warmth [Recovered/Resolved]
  - Injection site vesicles [Recovered/Resolved]
